FAERS Safety Report 7978242-8 (Version None)
Quarter: 2011Q4

REPORT INFORMATION
  Report Type: 
  Country: None (occurrence: None)
  Receive Date: 20111214
  Receipt Date: 20111209
  Transmission Date: 20120403
  Serious: Yes (Other)
  Sender: FDA-Public Use
  Company Number: SE-PFIZER INC-2011266768

PATIENT
  Age: 60 Year
  Sex: Female
  Weight: 100 kg

DRUGS (7)
  1. LYRICA [Suspect]
     Indication: NEUROPATHY PERIPHERAL
     Dosage: 150 MG, 2X/DAY
     Dates: start: 20060101
  2. LYRICA [Suspect]
     Dosage: UNK
     Dates: start: 20111020
  3. CALCIUM CARBONATE [Concomitant]
     Dosage: 1+0+1
  4. LYRICA [Suspect]
     Dosage: 300 MG, 2X/DAY
  5. OXYCODONE HCL [Concomitant]
     Dosage: 5 MG, AS NEEDED
  6. OXYCONTIN [Concomitant]
     Dosage: 5 MG, 1+0+1
  7. ACETAMINOPHEN [Concomitant]
     Dosage: UNK

REACTIONS (4)
  - GASTRIC BYPASS [None]
  - WEIGHT INCREASED [None]
  - INCONTINENCE [None]
  - PAIN IN EXTREMITY [None]
